FAERS Safety Report 13262700 (Version 1)
Quarter: 2017Q1

REPORT INFORMATION
  Report Type: Spontaneous
  Country: TR (occurrence: TR)
  Receive Date: 20170223
  Receipt Date: 20170223
  Transmission Date: 20170428
  Serious: Yes (Other)
  Sender: FDA-Public Use
  Company Number: TR-BAUSCH-BL-2017-004557

PATIENT
  Age: 52 Year
  Sex: Female

DRUGS (1)
  1. DEXAMETHASONE. [Suspect]
     Active Substance: DEXAMETHASONE
     Indication: MACULAR OEDEMA
     Dosage: INTRAVITREAL INJECTION OF DEXAMETHASONE 0.7 MG IMPLANT
     Route: 050

REACTIONS (1)
  - Eyelid ptosis [Not Recovered/Not Resolved]
